FAERS Safety Report 7248940-2 (Version None)
Quarter: 2011Q1

REPORT INFORMATION
  Report Type: 
  Country: None (occurrence: None)
  Receive Date: 20110128
  Receipt Date: 20100831
  Transmission Date: 20110831
  Serious: Yes (Other)
  Sender: FDA-Public Use
  Company Number: US-BAYER-201015251NA

PATIENT
  Sex: Female
  Weight: 70.455 kg

DRUGS (6)
  1. YASMIN [Suspect]
     Dates: start: 20050501, end: 20050601
  2. IMITREX [Concomitant]
     Dates: start: 20050101
  3. YASMIN [Suspect]
     Dates: start: 20030728
  4. UNCODEABLE ^UNCLASSIFIABLE^ [Concomitant]
  5. YASMIN [Suspect]
     Indication: MENSTRUAL CYCLE MANAGEMENT
     Route: 048
     Dates: start: 20040901, end: 20050701
  6. ALBUTEROL [Concomitant]

REACTIONS (7)
  - ARTHRALGIA [None]
  - PLEURISY [None]
  - DEEP VEIN THROMBOSIS [None]
  - PULMONARY EMBOLISM [None]
  - CHEST PAIN [None]
  - PULMONARY INFARCTION [None]
  - DYSPNOEA [None]
